FAERS Safety Report 7413974-1 (Version None)
Quarter: 2011Q2

REPORT INFORMATION
  Report Type: 
  Country: None (occurrence: None)
  Receive Date: 20110414
  Receipt Date: 20110404
  Transmission Date: 20111010
  Serious: No
  Sender: FDA-Public Use
  Company Number: US-BIOGENIDEC-2011BI012636

PATIENT
  Age: 48 Year
  Sex: Male

DRUGS (1)
  1. TYSABRI [Suspect]
     Indication: MULTIPLE SCLEROSIS
     Route: 042
     Dates: start: 20060801

REACTIONS (10)
  - INJURY [None]
  - FEELING ABNORMAL [None]
  - DRUG WITHDRAWAL SYNDROME [None]
  - FEELING JITTERY [None]
  - THINKING ABNORMAL [None]
  - DIZZINESS [None]
  - IMPATIENCE [None]
  - HEADACHE [None]
  - HALLUCINATION, AUDITORY [None]
  - IRRITABILITY [None]
